FAERS Safety Report 10240615 (Version 2)
Quarter: 2014Q2

REPORT INFORMATION
  Report Type: Report from Study
  Country: JP (occurrence: JP)
  Receive Date: 20140617
  Receipt Date: 20140617
  Transmission Date: 20141212
  Serious: Yes (Hospitalization)
  Sender: FDA-Public Use
  Company Number: JP-009507513-2011SP055441

PATIENT
  Age: 35 Year
  Sex: Female
  Weight: 42 kg

DRUGS (2)
  1. GANIREST SUBCUTANEOUS 0.25MG SYRINGE [Suspect]
     Indication: PREVENTION OF PREMATURE OVULATION
     Dosage: 0.25 MG, QD
     Route: 058
     Dates: start: 20100414, end: 20100414
  2. SUPRECUR [Concomitant]
     Indication: IN VITRO FERTILISATION
     Dosage: 600 ?G, QD
     Route: 045
     Dates: start: 20100414, end: 20100414

REACTIONS (3)
  - Threatened labour [Recovered/Resolved]
  - Forceps delivery [Recovered/Resolved]
  - Maternal exposure during pregnancy [Recovered/Resolved]
